FAERS Safety Report 4680941-0 (Version None)
Quarter: 2005Q2

REPORT INFORMATION
  Report Type: 
  Country: None (occurrence: None)
  Receive Date: 20050603
  Receipt Date: 20050303
  Transmission Date: 20051028
  Serious: Yes (Other)
  Sender: FDA-Public Use
  Company Number: PHBS2005BE03315

PATIENT
  Age: 37 Year
  Sex: Female

DRUGS (2)
  1. GLEEVEC [Suspect]
     Indication: CHRONIC MYELOID LEUKAEMIA
     Dosage: 400 MG/DAY
     Route: 048
     Dates: start: 20010101, end: 20050523
  2. DESOGESTREL AND ETHINYL ESTRADIOL [Concomitant]

REACTIONS (6)
  - BLISTER [None]
  - CONJUNCTIVITIS [None]
  - EYE OEDEMA [None]
  - FLUID RETENTION [None]
  - INJURY [None]
  - OEDEMA [None]
